FAERS Safety Report 12256077 (Version 1)
Quarter: 2016Q2

REPORT INFORMATION
  Report Type: Spontaneous
  Country: US (occurrence: None)
  Receive Date: 20160411
  Receipt Date: 20160411
  Transmission Date: 20160815
  Serious: Yes (Other)
  Sender: FDA-Public Use
  Company Number: None

PATIENT
  Age: 42 Year
  Sex: Male
  Weight: 79.38 kg

DRUGS (11)
  1. STATTERA [Concomitant]
  2. GABAPENTIN. [Concomitant]
     Active Substance: GABAPENTIN
  3. TIZANIDINE. [Concomitant]
     Active Substance: TIZANIDINE
  4. MULTIVITAMIN [Concomitant]
     Active Substance: VITAMINS
  5. FANAPT [Suspect]
     Active Substance: ILOPERIDONE
     Indication: SCHIZOPHRENIA
     Dosage: 30 TABLET(S) IN THE MORNING TAKEN BY MOUTH
     Route: 048
  6. KLONOPIN [Concomitant]
     Active Substance: CLONAZEPAM
  7. FISH OIL [Concomitant]
     Active Substance: FISH OIL
  8. CYMBALTA [Concomitant]
     Active Substance: DULOXETINE HYDROCHLORIDE
  9. EFFEXOR XR [Concomitant]
     Active Substance: VENLAFAXINE HYDROCHLORIDE
  10. BUSPAR [Concomitant]
     Active Substance: BUSPIRONE HYDROCHLORIDE
  11. BUTRAN [Concomitant]

REACTIONS (6)
  - Restlessness [None]
  - Anxiety [None]
  - Erectile dysfunction [None]
  - Palpitations [None]
  - Ejaculation failure [None]
  - Feeling abnormal [None]

NARRATIVE: CASE EVENT DATE: 20160401
